FAERS Safety Report 4602292-2 (Version None)
Quarter: 2005Q1

REPORT INFORMATION
  Report Type: 
  Country: None (occurrence: None)
  Receive Date: 20050201
  Receipt Date: 20040416
  Transmission Date: 20050727
  Serious: Yes (Hospitalization)
  Sender: FDA-Public Use
  Company Number: 200417628BWH

PATIENT
  Age: 72 Year
  Sex: Male

DRUGS (1)
  1. AVELOX [Suspect]
     Indication: CHRONIC OBSTRUCTIVE PULMONARY DISEASE
     Dosage: 2400 MG, TOTAL DAILY, ORAL
     Route: 048

REACTIONS (1)
  - NO ADVERSE DRUG EFFECT [None]
